FAERS Safety Report 18241613 (Version 1)
Quarter: 2020Q3

REPORT INFORMATION
  Report Type: Spontaneous
  Country: US (occurrence: US)
  Receive Date: 20200907
  Receipt Date: 20200907
  Transmission Date: 20201103
  Serious: No
  Sender: FDA-Public Use
  Company Number: None

PATIENT
  Age: 10 Year
  Sex: Male
  Weight: 32.4 kg

DRUGS (5)
  1. STIMATE [Suspect]
     Active Substance: DESMOPRESSIN ACETATE
     Indication: HAEMOPHILIA
     Dosage: ?          QUANTITY:25 SPRAY(S);?
     Route: 045
     Dates: start: 20120711, end: 20200715
  2. OLLY MULTIVITAMINS [Concomitant]
  3. PROBIOTIC [Concomitant]
     Active Substance: PROBIOTICS NOS
  4. XYNTHA [Concomitant]
     Active Substance: ANTIHEMOPHILIC FACTOR, HUMAN RECOMBINANT RESIDUES 743-1636 DELETED
  5. OLLY SLEEP [Concomitant]

REACTIONS (1)
  - Migraine [None]

NARRATIVE: CASE EVENT DATE: 20200222
